FAERS Safety Report 9511367 (Version 2)
Quarter: 2013Q4

REPORT INFORMATION
  Report Type: Spontaneous
  Country: US (occurrence: None)
  Receive Date: 20130906
  Receipt Date: 20131010
  Transmission Date: 20140711
  Serious: Yes (Congenital Anomaly)
  Sender: FDA-Public Use
  Company Number: 7234227

PATIENT
  Sex: Male
  Weight: 4 kg

DRUGS (1)
  1. LEVOTHYROXINE SODIUM [Suspect]
     Indication: HYPOTHYROIDISM
     Dosage: PRODUCT TAKEN BY MOTHER

REACTIONS (15)
  - Gene mutation [None]
  - Hypothyroidism [None]
  - Congenital anomaly [None]
  - Maternal drugs affecting foetus [None]
  - Deafness [None]
  - Speech disorder developmental [None]
  - Motor developmental delay [None]
  - Caesarean section [None]
  - Macrocephaly [None]
  - Apgar score low [None]
  - Hypotonia [None]
  - Respiratory distress [None]
  - Feeding disorder neonatal [None]
  - Deafness neurosensory [None]
  - Growth retardation [None]
